FAERS Safety Report 9217226 (Version 1)
Quarter: 2013Q2

REPORT INFORMATION
  Report Type: Spontaneous
  Country: GB (occurrence: GB)
  Receive Date: 20130408
  Receipt Date: 20130408
  Transmission Date: 20140414
  Serious: Yes (Hospitalization)
  Sender: FDA-Public Use
  Company Number: GB-ROCHE-1207396

PATIENT
  Sex: Male

DRUGS (5)
  1. ACTILYSE [Suspect]
     Indication: MYOCARDIAL INFARCTION
     Route: 042
     Dates: start: 19961027, end: 19961027
  2. ISOSORBIDE MONONITRATE [Concomitant]
     Indication: CORONARY ARTERY DISEASE
     Route: 048
  3. BISOPROLOL [Concomitant]
     Indication: MYOCARDIAL INFARCTION
     Route: 048
     Dates: start: 199610
  4. ASPIRIN [Concomitant]
     Indication: CORONARY ARTERY DISEASE
     Route: 048
     Dates: start: 199610
  5. AMIODARONE [Concomitant]
     Indication: VENTRICULAR FIBRILLATION
     Route: 048
     Dates: start: 199610, end: 199701

REACTIONS (1)
  - Guillain-Barre syndrome [Not Recovered/Not Resolved]
